FAERS Safety Report 14053468 (Version 2)
Quarter: 2017Q4

REPORT INFORMATION
  Report Type: Spontaneous
  Country: US (occurrence: US)
  Receive Date: 20171006
  Receipt Date: 20171121
  Transmission Date: 20180321
  Serious: No
  Sender: FDA-Public Use
  Company Number: US-JNJFOC-20170922963

PATIENT
  Age: 63 Year
  Sex: Male
  Weight: 92.53 kg

DRUGS (25)
  1. INVEGA [Concomitant]
     Active Substance: PALIPERIDONE
     Indication: PARANOIA
     Route: 048
  2. INVEGA [Concomitant]
     Active Substance: PALIPERIDONE
     Indication: HALLUCINATION
     Route: 048
  3. BUMEX [Concomitant]
     Active Substance: BUMETANIDE
     Indication: HYPERTENSION
     Route: 048
  4. FLOMAX [Concomitant]
     Active Substance: TAMSULOSIN HYDROCHLORIDE
     Indication: URINARY RETENTION
     Route: 048
  5. PRILOSEC [Concomitant]
     Active Substance: OMEPRAZOLE MAGNESIUM
     Indication: GASTROOESOPHAGEAL REFLUX DISEASE
     Route: 048
  6. METOPROLOL. [Concomitant]
     Active Substance: METOPROLOL
     Indication: HYPERTENSION
     Route: 048
  7. AMLODIPINE [Concomitant]
     Active Substance: AMLODIPINE BESYLATE
     Indication: HYPERTENSION
     Route: 048
  8. LANTUS [Concomitant]
     Active Substance: INSULIN GLARGINE
     Indication: TYPE 2 DIABETES MELLITUS
     Route: 065
  9. ASPIRIN. [Concomitant]
     Active Substance: ASPIRIN
     Indication: ANTICOAGULANT THERAPY
     Route: 048
  10. OXYBUTYNIN. [Concomitant]
     Active Substance: OXYBUTYNIN CHLORIDE
     Indication: URINARY RETENTION
     Route: 048
  11. SEROQUEL [Concomitant]
     Active Substance: QUETIAPINE FUMARATE
     Indication: PARANOIA
     Route: 048
  12. SEROQUEL [Concomitant]
     Active Substance: QUETIAPINE FUMARATE
     Indication: HALLUCINATION
     Route: 048
  13. LISINOPRIL. [Concomitant]
     Active Substance: LISINOPRIL
     Indication: HYPERTENSION
     Route: 048
  14. ATORVASTATIN [Concomitant]
     Active Substance: ATORVASTATIN
     Indication: BLOOD CHOLESTEROL ABNORMAL
     Route: 048
  15. SENOKOT [Concomitant]
     Active Substance: SENNOSIDES
     Indication: ABNORMAL FAECES
     Route: 048
  16. HYDROMORPHONE [Concomitant]
     Active Substance: HYDROMORPHONE
     Indication: PAIN
     Route: 048
  17. LEVOTHYROXINE. [Concomitant]
     Active Substance: LEVOTHYROXINE
     Indication: THYROID HORMONE REPLACEMENT THERAPY
     Route: 048
  18. OYSCO [Concomitant]
     Indication: NUTRITIONAL SUPPLEMENTATION
     Route: 048
  19. INVEGA SUSTENNA [Suspect]
     Active Substance: PALIPERIDONE PALMITATE
     Indication: SCHIZOPHRENIA
     Route: 030
  20. BUPROPION. [Concomitant]
     Active Substance: BUPROPION
     Indication: MENTAL DISORDER
     Route: 048
  21. FINASTERIDE. [Concomitant]
     Active Substance: FINASTERIDE
     Indication: BENIGN PROSTATIC HYPERPLASIA
     Route: 048
  22. CALCIUM ACETATE. [Concomitant]
     Active Substance: CALCIUM ACETATE
     Indication: GASTRIC DISORDER
     Route: 048
  23. LORAZEPAM. [Concomitant]
     Active Substance: LORAZEPAM
     Indication: ANXIETY
     Route: 048
  24. NYSTATIN. [Concomitant]
     Active Substance: NYSTATIN
     Indication: DENTAL DISORDER PROPHYLAXIS
     Route: 048
  25. CALCIUM ACETATE. [Concomitant]
     Active Substance: CALCIUM ACETATE
     Indication: NUTRITIONAL SUPPLEMENTATION
     Route: 048

REACTIONS (2)
  - Drug dose omission [Unknown]
  - Product leakage [Unknown]

NARRATIVE: CASE EVENT DATE: 20170920
